FAERS Safety Report 12643374 (Version 1)
Quarter: 2016Q3

REPORT INFORMATION
  Report Type: Spontaneous
  Country: US (occurrence: US)
  Receive Date: 20160811
  Receipt Date: 20160811
  Transmission Date: 20161109
  Serious: Yes (Hospitalization)
  Sender: FDA-Public Use
  Company Number: PHEH2016US019980

PATIENT
  Age: 81 Year
  Sex: Female

DRUGS (4)
  1. HYDROCORTONE [Concomitant]
     Active Substance: HYDROCORTISONE
     Indication: PRODUCT USED FOR UNKNOWN INDICATION
     Dosage: UNK
     Route: 065
     Dates: start: 20160512, end: 20160523
  2. PREMARIN [Concomitant]
     Active Substance: ESTROGENS, CONJUGATED
     Indication: PRODUCT USED FOR UNKNOWN INDICATION
     Dosage: UNK
     Route: 065
     Dates: start: 20160523
  3. LOTRISONE [Suspect]
     Active Substance: BETAMETHASONE DIPROPIONATE\CLOTRIMAZOLE
     Indication: RASH
     Dosage: UNK
     Route: 061
     Dates: start: 201605
  4. FORMOTEROL [Suspect]
     Active Substance: FORMOTEROL
     Indication: SKIN IRRITATION
     Dosage: UNK
     Route: 048
     Dates: start: 20160526

REACTIONS (1)
  - Drug ineffective [Unknown]

NARRATIVE: CASE EVENT DATE: 201605
